FAERS Safety Report 4782853-0 (Version None)
Quarter: 2005Q3

REPORT INFORMATION
  Report Type: 
  Country: None (occurrence: None)
  Receive Date: 20050927
  Receipt Date: 20050914
  Transmission Date: 20060218
  Serious: Yes (Death)
  Sender: FDA-Public Use
  Company Number: 2005128241

PATIENT
  Age: 32 Year

DRUGS (4)
  1. ZIPRASIDONE (CAPS) (ZIPRASIDONE) [Suspect]
     Indication: ILL-DEFINED DISORDER
  2. QUETIAPINE FUMARATE [Suspect]
     Indication: ILL-DEFINED DISORDER
  3. ALL OTHER THERAPEUTIC PRODUCTS (ALL OTHER THERAPEUTIC PRODUCTS) [Suspect]
     Indication: ILL-DEFINED DISORDER
  4. RISPERIDONE [Suspect]
     Indication: ILL-DEFINED DISORDER

REACTIONS (1)
  - THERAPEUTIC AGENT TOXICITY [None]
